FAERS Safety Report 12634696 (Version 1)
Quarter: 2016Q3

REPORT INFORMATION
  Report Type: Spontaneous
  Country: US (occurrence: US)
  Receive Date: 20160808
  Receipt Date: 20160808
  Transmission Date: 20161109
  Serious: No
  Sender: FDA-Public Use
  Company Number: US-PFIZER INC-2016369037

PATIENT

DRUGS (1)
  1. GABAPENTIN. [Suspect]
     Active Substance: GABAPENTIN
     Indication: NEURALGIA
     Dosage: UNK, 3X/DAY (LOW DOSE)

REACTIONS (5)
  - Pre-existing condition improved [Unknown]
  - Product use issue [Unknown]
  - Feeling hot [Unknown]
  - Therapeutic response unexpected [Unknown]
  - Drug dose omission [Unknown]
